FAERS Safety Report 8976165 (Version 1)
Quarter: 2012Q4

REPORT INFORMATION
  Report Type: 
  Country: IN (occurrence: IN)
  Receive Date: 20121220
  Receipt Date: 20121220
  Transmission Date: 20130627
  Serious: Yes (Hospitalization)
  Sender: FDA-Public Use
  Company Number: IN-PFIZER INC-2012320029

PATIENT
  Age: 4 Year
  Sex: Male

DRUGS (1)
  1. HALOPERIDOL [Suspect]
     Dosage: indeterminate amount of 5 mg

REACTIONS (6)
  - Accidental poisoning [Recovered/Resolved]
  - Accidental exposure to product by child [Recovered/Resolved]
  - Anticholinergic syndrome [Recovered/Resolved]
  - Somnolence [Recovered/Resolved]
  - Parkinsonism [Recovered/Resolved]
  - Nystagmus [Recovered/Resolved]
